FAERS Safety Report 4661635-4 (Version None)
Quarter: 2005Q2

REPORT INFORMATION
  Report Type: 
  Country: None (occurrence: None)
  Receive Date: 20050513
  Receipt Date: 20050225
  Transmission Date: 20051028
  Serious: Yes (Death, Hospitalization)
  Sender: FDA-Public Use
  Company Number: US-MERCK-0503USA00102

PATIENT
  Age: 76 Year
  Sex: Female
  Weight: 80 kg

DRUGS (20)
  1. VIOXX [Suspect]
     Indication: OSTEOARTHRITIS
     Route: 048
     Dates: start: 20010201, end: 20030205
  2. VIOXX [Suspect]
     Indication: RHEUMATOID ARTHRITIS
     Route: 048
     Dates: start: 20010201, end: 20030205
  3. COZAAR [Concomitant]
     Indication: CARDIAC DISORDER
     Route: 048
  4. COZAAR [Concomitant]
     Indication: CARDIOMEGALY
     Route: 048
  5. LOPRESSOR [Concomitant]
     Indication: CARDIAC DISORDER
     Route: 065
  6. COUMADIN [Concomitant]
     Indication: ATRIAL FIBRILLATION
     Route: 065
  7. COUMADIN [Concomitant]
     Indication: CARDIAC VALVE DISEASE
     Route: 065
  8. TYLENOL (CAPLET) [Concomitant]
     Route: 065
  9. PROCHLORPERAZINE [Concomitant]
     Indication: ANXIETY
     Route: 065
  10. PROCHLORPERAZINE [Concomitant]
     Indication: NAUSEA
     Route: 065
  11. LEVOXYL [Concomitant]
     Indication: THYROID DISORDER
     Route: 065
  12. GLYBURIDE [Concomitant]
     Indication: DIABETES MELLITUS
     Route: 065
  13. SINGULAIR [Concomitant]
     Indication: ASTHMA
     Route: 065
  14. PEPCID AC [Concomitant]
     Indication: STOMACH DISCOMFORT
     Route: 048
  15. MECLIZINE [Concomitant]
     Indication: DIZZINESS
     Route: 065
  16. CELEBREX [Concomitant]
     Indication: PAIN
     Route: 065
  17. NITROSTAT [Concomitant]
     Indication: ANGINA PECTORIS
     Route: 065
  18. PLAVIX [Concomitant]
     Indication: CEREBROVASCULAR ACCIDENT
     Route: 065
  19. ASPIRIN [Concomitant]
     Indication: PAIN
     Route: 065
  20. ASPIRIN [Concomitant]
     Indication: CARDIAC DISORDER
     Route: 065

REACTIONS (20)
  - ANGINA PECTORIS [None]
  - ANXIETY [None]
  - ASTHMA [None]
  - CARDIAC FAILURE [None]
  - CARDIAC FAILURE CONGESTIVE [None]
  - CARDIOMEGALY [None]
  - DIABETES MELLITUS [None]
  - DIZZINESS [None]
  - DYSPEPSIA [None]
  - DYSPNOEA [None]
  - FOOT FRACTURE [None]
  - GASTROOESOPHAGEAL REFLUX DISEASE [None]
  - MALAISE [None]
  - NAUSEA [None]
  - OEDEMA [None]
  - PAIN [None]
  - RENAL DISORDER [None]
  - STOMACH DISCOMFORT [None]
  - THYROID DISORDER [None]
  - TRANSIENT ISCHAEMIC ATTACK [None]
